FAERS Safety Report 7313016-2 (Version None)
Quarter: 2011Q1

REPORT INFORMATION
  Report Type: 
  Country: None (occurrence: None)
  Receive Date: 20110225
  Receipt Date: 20110218
  Transmission Date: 20110831
  Serious: Yes (Hospitalization)
  Sender: FDA-Public Use
  Company Number: NO-BIOGENIDEC-2011BI001981

PATIENT
  Age: 48 Year
  Sex: Female

DRUGS (6)
  1. PINEX FORTE [Concomitant]
     Route: 048
  2. SOBRIL [Concomitant]
  3. ZOPICLONE [Concomitant]
  4. NEURONTIN [Concomitant]
  5. SELEXID [Concomitant]
  6. TYSABRI [Suspect]
     Indication: RELAPSING-REMITTING MULTIPLE SCLEROSIS
     Route: 042
     Dates: start: 20090915

REACTIONS (2)
  - URINARY TRACT INFECTION [None]
  - NEURALGIA [None]
